FAERS Safety Report 8305917-3 (Version None)
Quarter: 2012Q2

REPORT INFORMATION
  Report Type: 
  Country: None (occurrence: None)
  Receive Date: 20120423
  Receipt Date: 20120214
  Transmission Date: 20120825
  Serious: No
  Sender: FDA-Public Use
  Company Number: US-BAUSCH-2012BL001106

PATIENT
  Age: 91 Year
  Sex: Female

DRUGS (1)
  1. LEVOBUNOLOL HYDROCHLORIDE [Suspect]
     Indication: GLAUCOMA
     Route: 047
     Dates: start: 20120101, end: 20120210

REACTIONS (2)
  - EYE IRRITATION [None]
  - EYELID MARGIN CRUSTING [None]
